FAERS Safety Report 18504324 (Version 1)
Quarter: 2020Q4

REPORT INFORMATION
  Report Type: Spontaneous
  Country: GB (occurrence: GB)
  Receive Date: 20201114
  Receipt Date: 20201114
  Transmission Date: 20210114
  Serious: No
  Sender: FDA-Public Use
  Company Number: GB-ALKEM LABORATORIES LIMITED-GB-ALKEM-2011-00002

PATIENT
  Age: 42 Year
  Sex: Male

DRUGS (6)
  1. PREGABALIN. [Suspect]
     Active Substance: PREGABALIN
     Indication: ALCOHOLISM
  2. PREGABALIN. [Suspect]
     Active Substance: PREGABALIN
     Indication: NARCISSISTIC PERSONALITY DISORDER
  3. QUETIAPINE. [Concomitant]
     Active Substance: QUETIAPINE
     Indication: GENERALISED ANXIETY DISORDER
  4. QUETIAPINE. [Concomitant]
     Active Substance: QUETIAPINE
     Indication: ALCOHOLISM
  5. PREGABALIN. [Suspect]
     Active Substance: PREGABALIN
     Indication: GENERALISED ANXIETY DISORDER
     Dosage: 300 MILLIGRAM, QD (150 MG, 2X/DAY (EVERY 1 DAY))
     Route: 065
  6. QUETIAPINE. [Concomitant]
     Active Substance: QUETIAPINE
     Indication: NARCISSISTIC PERSONALITY DISORDER
     Dosage: 100 MILLIGRAM, QD (50 MG, 2X/DAY (EVERY 1 DAY))
     Route: 065

REACTIONS (1)
  - Libido increased [Unknown]
